FAERS Safety Report 4319536-7 (Version None)
Quarter: 2004Q1

REPORT INFORMATION
  Report Type: 
  Country: None (occurrence: None)
  Receive Date: 20040316
  Receipt Date: 20040301
  Transmission Date: 20041129
  Serious: Yes (Hospitalization)
  Sender: FDA-Public Use
  Company Number: S04-USA-01045-01

PATIENT
  Age: 76 Year
  Sex: Male

DRUGS (4)
  1. NAMENDA [Suspect]
     Indication: DEMENTIA
     Dosage: 5 MG BID PO
     Route: 048
     Dates: start: 20040201, end: 20040228
  2. NAMENDA [Suspect]
     Indication: DEMENTIA
     Dosage: 5 MG QD PO
     Route: 048
     Dates: start: 20040201, end: 20040201
  3. ARICEPT [Concomitant]
  4. LEXAPRO [Concomitant]

REACTIONS (2)
  - PNEUMONIA [None]
  - RHABDOMYOLYSIS [None]
